FAERS Safety Report 9664127 (Version 2)
Quarter: 2013Q4

REPORT INFORMATION
  Report Type: Spontaneous
  Country: BE (occurrence: BE)
  Receive Date: 20131101
  Receipt Date: 20131101
  Transmission Date: 20140711
  Serious: Yes (Hospitalization, Other)
  Sender: FDA-Public Use
  Company Number: BE-BAYER-2013-125195

PATIENT
  Age: 91 Year
  Sex: Male

DRUGS (3)
  1. XARELTO [Suspect]
     Indication: ATRIAL FIBRILLATION
     Dosage: 20 MG, UNK
  2. XARELTO [Suspect]
     Indication: CEREBROVASCULAR ACCIDENT PROPHYLAXIS
     Dosage: 15 MG, UNK
  3. CARDIOASPIRINE [Suspect]
     Dosage: UNK
     Dates: end: 20131014

REACTIONS (4)
  - Anaemia [Not Recovered/Not Resolved]
  - Pre-existing condition improved [Recovered/Resolved]
  - Haemoglobin decreased [None]
  - Pallor [Not Recovered/Not Resolved]
